FAERS Safety Report 17905219 (Version 1)
Quarter: 2020Q2

REPORT INFORMATION
  Report Type: Spontaneous
  Country: US (occurrence: US)
  Receive Date: 20200616
  Receipt Date: 20200616
  Transmission Date: 20200714
  Serious: No
  Sender: FDA-Public Use
  Company Number: US-ROCHE-2540698

PATIENT
  Sex: Female

DRUGS (2)
  1. ACTEMRA [Suspect]
     Active Substance: TOCILIZUMAB
     Indication: HYPERTHYROIDISM
     Dosage: STRENGTH; 80MG/4ML
     Route: 042
     Dates: start: 20191127
  2. ACTEMRA [Suspect]
     Active Substance: TOCILIZUMAB
     Dosage: STRENGTH; 400MG/20ML
     Route: 042
     Dates: start: 20191127

REACTIONS (3)
  - White blood cell count decreased [Unknown]
  - Intentional product use issue [Unknown]
  - Off label use [Unknown]
